FAERS Safety Report 7310910-3 (Version None)
Quarter: 2011Q1

REPORT INFORMATION
  Report Type: 
  Country: None (occurrence: None)
  Receive Date: 20110210
  Receipt Date: 20110128
  Transmission Date: 20110831
  Serious: Yes (Death)
  Sender: FDA-Public Use
  Company Number: UTC-004951

PATIENT
  Age: 22 Year
  Sex: Male
  Weight: 98.9 kg

DRUGS (1)
  1. REMODULIN (1 MILLIGRAM/MILLILITERS, INJECTION FOR INFUSION) (TREPROSTI [Suspect]
     Indication: PULMONARY ARTERIAL HYPERTENSION
     Dosage: 23.04 UG/KG (0.016 UG/KG, 1 IN 1 MIN), INTRAVENOUS
     Route: 042
     Dates: start: 20090514

REACTIONS (1)
  - DEATH [None]
